FAERS Safety Report 4870970-6 (Version None)
Quarter: 2005Q4

REPORT INFORMATION
  Report Type: 
  Country: None (occurrence: None)
  Receive Date: 20051228
  Receipt Date: 20051213
  Transmission Date: 20060501
  Serious: Yes (Hospitalization, Other)
  Sender: FDA-Public Use
  Company Number: US-2005-023981

PATIENT
  Age: 40 Year
  Sex: Female
  Weight: 52 kg

DRUGS (4)
  1. BETASERON [Suspect]
     Indication: RELAPSING-REMITTING MULTIPLE SCLEROSIS
     Dosage: 8 MIU, EVERY 2D, SUBCUTANEOUS
     Route: 058
     Dates: start: 20031205
  2. DITROPAN XL [Concomitant]
  3. NECON [Concomitant]
  4. MVI (VITAMIN NOS) [Concomitant]

REACTIONS (16)
  - ABDOMINAL DISTENSION [None]
  - APPENDICITIS [None]
  - BACTERIA URINE IDENTIFIED [None]
  - FAECALOMA [None]
  - FLATULENCE [None]
  - HEPATIC STEATOSIS [None]
  - INJECTION SITE REACTION [None]
  - INTESTINAL DILATATION [None]
  - INTESTINAL ISCHAEMIA [None]
  - LAXATIVE ABUSE [None]
  - LIPASE INCREASED [None]
  - LUNG NEOPLASM [None]
  - MEGACOLON [None]
  - MUSCLE INJURY [None]
  - PYELONEPHRITIS [None]
  - SMALL INTESTINAL OBSTRUCTION [None]
